FAERS Safety Report 24155943 (Version 1)
Quarter: 2024Q3

REPORT INFORMATION
  Report Type: Spontaneous
  Country: PH (occurrence: PH)
  Receive Date: 20240731
  Receipt Date: 20240731
  Transmission Date: 20241016
  Serious: Yes (Hospitalization)
  Sender: ACCORD
  Company Number: PH-Accord-437945

PATIENT
  Sex: Female

DRUGS (17)
  1. CISPLATIN [Suspect]
     Active Substance: CISPLATIN
     Indication: Gestational trophoblastic tumour
     Dosage: 19 CYCLES
     Dates: start: 20200901, end: 20220208
  2. ETOPOSIDE [Suspect]
     Active Substance: ETOPOSIDE
     Indication: Gestational trophoblastic tumour
     Dosage: 19 CYCLES
     Dates: start: 20200901, end: 20220208
  3. METHOTREXATE [Concomitant]
     Active Substance: METHOTREXATE
     Indication: Gestational trophoblastic tumour
     Dosage: 19 CYCLES
     Dates: start: 20200901, end: 20220208
  4. ACTINOMYCIN D [Concomitant]
     Active Substance: DACTINOMYCIN
     Indication: Gestational trophoblastic tumour
     Dates: start: 20200901, end: 20220208
  5. CYCLOPHOSPHAMIDE [Concomitant]
     Active Substance: CYCLOPHOSPHAMIDE
     Indication: Gestational trophoblastic tumour
     Dosage: 10 CYCLES
     Dates: start: 20191106, end: 20200709
  6. VINCRISTINE [Concomitant]
     Active Substance: VINCRISTINE
     Indication: Gestational trophoblastic tumour
     Dosage: 10 CYCLES
     Dates: start: 20191106, end: 20200709
  7. METHOTREXATE [Concomitant]
     Active Substance: METHOTREXATE
     Indication: Gestational trophoblastic tumour
     Dosage: 10 CYCLES
     Dates: start: 20191106, end: 20200709
  8. ETOPOSIDE [Suspect]
     Active Substance: ETOPOSIDE
     Indication: Gestational trophoblastic tumour
     Dosage: 10 CYCLES
     Dates: start: 20191106, end: 20200709
  9. ACTINOMYCIN D [Concomitant]
     Active Substance: DACTINOMYCIN
     Indication: Gestational trophoblastic tumour
     Dates: start: 20191106, end: 20200709
  10. METHOTREXATE [Concomitant]
     Active Substance: METHOTREXATE
     Indication: Choriocarcinoma
     Dosage: 19 CYCLES
     Dates: start: 20191106, end: 20200709
  11. ETOPOSIDE [Suspect]
     Active Substance: ETOPOSIDE
     Indication: Gestational trophoblastic tumour
     Dosage: 10 CYCLES
     Dates: start: 20191106, end: 20200709
  12. ACTINOMYCIN D [Concomitant]
     Active Substance: DACTINOMYCIN
     Indication: Choriocarcinoma
     Dosage: 10 CYCLES
     Dates: start: 20191106, end: 20200709
  13. ACTINOMYCIN D [Concomitant]
     Active Substance: DACTINOMYCIN
     Indication: Choriocarcinoma
     Dates: start: 20200901, end: 20220208
  14. CYCLOPHOSPHAMIDE [Concomitant]
     Active Substance: CYCLOPHOSPHAMIDE
     Indication: Choriocarcinoma
     Dosage: 10 CYCLES
     Dates: start: 20191106, end: 20200709
  15. CISPLATIN [Suspect]
     Active Substance: CISPLATIN
     Indication: Choriocarcinoma
     Dosage: 19 CYCLES
     Dates: start: 20200901, end: 20220208
  16. METHOTREXATE [Concomitant]
     Active Substance: METHOTREXATE
     Indication: Choriocarcinoma
     Dosage: 19 CYCLES
     Dates: start: 20200901, end: 20220208
  17. ETOPOSIDE [Suspect]
     Active Substance: ETOPOSIDE
     Indication: Choriocarcinoma
     Dosage: 19 CYCLES
     Dates: start: 20200901, end: 20220208

REACTIONS (2)
  - Chronic kidney disease [Unknown]
  - Off label use [Unknown]
